FAERS Safety Report 7806639-5 (Version None)
Quarter: 2011Q4

REPORT INFORMATION
  Report Type: 
  Country: None (occurrence: None)
  Receive Date: 20111011
  Receipt Date: 20111005
  Transmission Date: 20120403
  Serious: Yes (Hospitalization, Other)
  Sender: FDA-Public Use
  Company Number: US-JNJFOC-20110711814

PATIENT
  Sex: Female
  Weight: 75.21 kg

DRUGS (1)
  1. LEVAQUIN [Suspect]
     Indication: PRODUCT USED FOR UNKNOWN INDICATION
     Route: 048
     Dates: start: 20090529, end: 20090607

REACTIONS (2)
  - TENDON RUPTURE [None]
  - ROTATOR CUFF SYNDROME [None]
